FAERS Safety Report 7426684-1 (Version None)
Quarter: 2011Q2

REPORT INFORMATION
  Report Type: 
  Country: None (occurrence: None)
  Receive Date: 20110420
  Receipt Date: 20110418
  Transmission Date: 20111010
  Serious: Yes (Other)
  Sender: FDA-Public Use
  Company Number: US-PFIZER INC-2010181778

PATIENT
  Sex: Male

DRUGS (5)
  1. LISINOPRIL [Concomitant]
     Indication: HYPERTENSION
     Dosage: UNK
     Dates: start: 20080101
  2. ZANTAC [Concomitant]
     Indication: GASTROOESOPHAGEAL REFLUX DISEASE
     Dosage: UNK
  3. CHANTIX [Suspect]
     Indication: SMOKING CESSATION THERAPY
     Dosage: 1MG AND 5 MG
     Route: 048
     Dates: start: 20090108, end: 20090430
  4. NITROGLYCERIN [Concomitant]
     Indication: MYOCARDIAL INFARCTION
     Dosage: UNK
     Dates: start: 20070101, end: 20100101
  5. NOVOLIN 70/30 [Concomitant]
     Indication: DIABETES MELLITUS
     Dosage: UNK

REACTIONS (8)
  - DEPRESSION [None]
  - HALLUCINATION, AUDITORY [None]
  - PERSONALITY DISORDER [None]
  - INSOMNIA [None]
  - SUICIDAL BEHAVIOUR [None]
  - NIGHTMARE [None]
  - LOSS OF CONSCIOUSNESS [None]
  - ANXIETY [None]
